FAERS Safety Report 19211849 (Version 1)
Quarter: 2021Q2

REPORT INFORMATION
  Report Type: Spontaneous
  Country: US (occurrence: US)
  Receive Date: 20210504
  Receipt Date: 20210504
  Transmission Date: 20210717
  Serious: No
  Sender: FDA-Public Use
  Company Number: None

PATIENT

DRUGS (1)
  1. DIPHENHYDRAMINE. [Suspect]
     Active Substance: DIPHENHYDRAMINE
     Indication: BLOOD DISORDER PROPHYLAXIS
     Route: 042

REACTIONS (2)
  - Restless legs syndrome [None]
  - Insomnia [None]

NARRATIVE: CASE EVENT DATE: 20201205
